FAERS Safety Report 5981907-0 (Version None)
Quarter: 2008Q4

REPORT INFORMATION
  Report Type: 
  Country: None (occurrence: None)
  Receive Date: 20081202
  Receipt Date: 20081121
  Transmission Date: 20090506
  Serious: Yes (Hospitalization)
  Sender: FDA-Public Use
  Company Number: 2008SP020880

PATIENT
  Age: 27 Year
  Sex: Male
  Weight: 73.6 kg

DRUGS (17)
  1. TEMZOLOMIDE (S-P) [Suspect]
     Indication: LYMPHOMA
     Dosage: 100 MG/M2;QD;PO;180 MG;QD;PO
     Route: 048
     Dates: start: 20080605, end: 20080605
  2. TEMZOLOMIDE (S-P) [Suspect]
     Indication: LYMPHOMA
     Dosage: 100 MG/M2;QD;PO;180 MG;QD;PO
     Route: 048
     Dates: start: 20080611, end: 20080614
  3. TEMZOLOMIDE (S-P) [Suspect]
     Indication: LYMPHOMA
     Dosage: 100 MG/M2;QD;PO;180 MG;QD;PO
     Route: 048
     Dates: start: 20080714, end: 20080718
  4. METHOTREXATE [Suspect]
     Indication: LYMPHOMA
     Dosage: QQW;IV;6 GM
     Route: 042
     Dates: start: 20080528, end: 20080528
  5. METHOTREXATE [Suspect]
     Indication: LYMPHOMA
     Dosage: QQW;IV;6 GM
     Route: 042
     Dates: start: 20080621, end: 20080621
  6. METHOTREXATE [Suspect]
     Indication: LYMPHOMA
     Dosage: QQW;IV;6 GM
     Route: 042
     Dates: start: 20080621
  7. METHOTREXATE [Suspect]
     Indication: LYMPHOMA
     Dosage: QQW;IV;6 GM
     Route: 042
     Dates: start: 20080705
  8. DILAUDID [Concomitant]
  9. PHENERGAN HCL [Concomitant]
  10. XANAX [Concomitant]
  11. ZOFRAN [Concomitant]
  12. RITUXIMAB [Suspect]
     Indication: LYMPHOMA
     Dosage: 375 MG/M2
     Dates: start: 20080507, end: 20080507
  13. DILAUDID [Suspect]
     Indication: PAIN
     Dosage: 4 MG;PRN
  14. VANCOMYCIN [Suspect]
     Indication: INFECTION
     Dosage: IV
     Route: 042
  15. PHENERGAN HCL [Suspect]
     Indication: NAUSEA
     Dosage: 25 MG;PRN;PO
     Route: 048
  16. XANAX [Suspect]
     Indication: DRUG USE FOR UNKNOWN INDICATION
     Dosage: 0.25 MG;BID;PO
     Route: 048
  17. NOVOLOG [Suspect]
     Indication: DIABETES MELLITUS
     Dosage: 10 IU;14 IU
     Route: 015

REACTIONS (19)
  - BLOOD ALBUMIN DECREASED [None]
  - BLOOD CALCIUM DECREASED [None]
  - BLOOD POTASSIUM DECREASED [None]
  - COLITIS [None]
  - DEHYDRATION [None]
  - DYSPNOEA [None]
  - FEBRILE NEUTROPENIA [None]
  - HAEMATOCRIT DECREASED [None]
  - HAEMOGLOBIN DECREASED [None]
  - HEADACHE [None]
  - HYDROCEPHALUS [None]
  - HYPERTENSION [None]
  - LUNG INFILTRATION [None]
  - NAUSEA [None]
  - PROTEIN TOTAL DECREASED [None]
  - RECTAL HAEMORRHAGE [None]
  - VOMITING [None]
  - WHITE BLOOD CELL COUNT DECREASED [None]
  - WITHDRAWAL SYNDROME [None]
